FAERS Safety Report 4652597-4 (Version None)
Quarter: 2005Q2

REPORT INFORMATION
  Report Type: 
  Country: None (occurrence: None)
  Receive Date: 20050502
  Receipt Date: 20050413
  Transmission Date: 20051028
  Serious: Yes (Other)
  Sender: FDA-Public Use
  Company Number: DE-2005-005440

PATIENT
  Age: 69 Year
  Sex: Male
  Weight: 96 kg

DRUGS (4)
  1. ULTRAVIST 370 [Suspect]
     Indication: CATHETERISATION CARDIAC
     Dosage: 120 ML, 1 DOSE, INTRACORONARY
     Route: 022
     Dates: start: 20050310, end: 20050310
  2. NORVASC/DEN/(AMLODIPINE BESILATE) [Concomitant]
  3. PENTAERYTHIRITOL TETRANITRATE TAB [Concomitant]
  4. CLEXANE/GFR/(HEPARIN-FRACTION, SODIUM SALT) [Concomitant]

REACTIONS (3)
  - ANGINA PECTORIS [None]
  - HYPERHIDROSIS [None]
  - HYPOTENSION [None]
